FAERS Safety Report 9809965 (Version 2)
Quarter: 2014Q4

REPORT INFORMATION
  Report Type: Spontaneous
  Country: US (occurrence: US)
  Receive Date: 20140110
  Receipt Date: 20141114
  Transmission Date: 20150529
  Serious: Yes (Other)
  Sender: FDA-Public Use
  Company Number: US-SANOFI-AVENTIS-2013SA078240

PATIENT
  Age: 56 Year

DRUGS (3)
  1. PLAVIX [Suspect]
     Active Substance: CLOPIDOGREL BISULFATE
     Indication: CEREBROVASCULAR ACCIDENT
     Route: 065
     Dates: start: 20100903, end: 201203
  2. PLAVIX [Suspect]
     Active Substance: CLOPIDOGREL BISULFATE
     Indication: TRANSIENT ISCHAEMIC ATTACK
     Route: 065
     Dates: start: 20100903, end: 201203
  3. ASPIRIN. [Suspect]
     Active Substance: ASPIRIN
     Indication: CEREBROVASCULAR ACCIDENT
     Route: 065

REACTIONS (7)
  - Stent malfunction [Unknown]
  - Fatigue [Unknown]
  - Anaesthesia [Unknown]
  - Vascular graft [Unknown]
  - Gastrointestinal haemorrhage [Not Recovered/Not Resolved]
  - Scar [Unknown]
  - Sinus congestion [Unknown]

NARRATIVE: CASE EVENT DATE: 20101223
